FAERS Safety Report 13217910 (Version 1)
Quarter: 2017Q1

REPORT INFORMATION
  Report Type: Other
  Country: US (occurrence: US)
  Receive Date: 20170210
  Receipt Date: 20170210
  Transmission Date: 20170428
  Serious: No
  Sender: FDA-Public Use
  Company Number: US-ACORDA-ACO_125305_2016

PATIENT
  Age: 68 Year
  Sex: Female
  Weight: 113.38 kg

DRUGS (2)
  1. TECFIDERA [Suspect]
     Active Substance: DIMETHYL FUMARATE
     Indication: MULTIPLE SCLEROSIS
     Dosage: 240 MG, BID
     Route: 048
     Dates: start: 2013
  2. AMPYRA [Suspect]
     Active Substance: DALFAMPRIDINE
     Indication: MULTIPLE SCLEROSIS
     Dosage: 10 MG, BID
     Route: 048
     Dates: start: 201507, end: 201507

REACTIONS (9)
  - Spinal column stenosis [Not Recovered/Not Resolved]
  - Drug hypersensitivity [Recovered/Resolved]
  - Arthropathy [Unknown]
  - Anger [Unknown]
  - Fall [Not Recovered/Not Resolved]
  - Emotional distress [Unknown]
  - Depressed mood [Unknown]
  - Flushing [Recovered/Resolved]
  - Spinal disorder [Unknown]

NARRATIVE: CASE EVENT DATE: 201504
